FAERS Safety Report 17952446 (Version 2)
Quarter: 2021Q1

REPORT INFORMATION
  Report Type: Spontaneous
  Country: MX (occurrence: MX)
  Receive Date: 20200626
  Receipt Date: 20210122
  Transmission Date: 20210419
  Serious: Yes (Other)
  Sender: FDA-Public Use
  Company Number: MX-009507513-2006MEX009182

PATIENT
  Age: 24 Year
  Sex: Female

DRUGS (1)
  1. IMPLANON NXT [Suspect]
     Active Substance: ETONOGESTREL
     Indication: CONTRACEPTION
     Dosage: 1 IMPLANT
     Route: 059
     Dates: start: 201810, end: 20200619

REACTIONS (10)
  - Menstruation irregular [Unknown]
  - Device physical property issue [Unknown]
  - Device colour issue [Unknown]
  - Unintended pregnancy [Recovered/Resolved]
  - Premature delivery [Unknown]
  - Therapeutic product ineffective [Unknown]
  - Pregnancy with implant contraceptive [Recovered/Resolved]
  - Suspected counterfeit product [Unknown]
  - Device defective [Unknown]
  - Counterfeit product administered [Unknown]

NARRATIVE: CASE EVENT DATE: 20191114
